FAERS Safety Report 8359353-4 (Version None)
Quarter: 2012Q2

REPORT INFORMATION
  Report Type: 
  Country: None (occurrence: None)
  Receive Date: 20120514
  Receipt Date: 20120514
  Transmission Date: 20120825
  Serious: Yes (Hospitalization)
  Sender: FDA-Public Use
  Company Number: None

PATIENT
  Sex: Male
  Weight: 95.5 kg

DRUGS (1)
  1. VINCRISTINE SULFATE [Suspect]
     Dosage: 10 MG

REACTIONS (2)
  - HYPOXIA [None]
  - CHEST PAIN [None]
